FAERS Safety Report 7394205-8 (Version None)
Quarter: 2011Q2

REPORT INFORMATION
  Report Type: 
  Country: None (occurrence: None)
  Receive Date: 20110405
  Receipt Date: 20110328
  Transmission Date: 20111010
  Serious: Yes (Hospitalization, Disabling)
  Sender: FDA-Public Use
  Company Number: US-ELI_LILLY_AND_COMPANY-US201103008158

PATIENT
  Sex: Female
  Weight: 81.633 kg

DRUGS (2)
  1. HUMALOG [Suspect]
     Indication: DIABETES MELLITUS
     Dosage: UNK UNK, PRN
  2. LANTUS [Concomitant]
     Dosage: UNK

REACTIONS (4)
  - CONTUSION [None]
  - WEIGHT DECREASED [None]
  - DECUBITUS ULCER [None]
  - LIMB INJURY [None]
